APPROVED DRUG PRODUCT: ORPHENADRINE CITRATE
Active Ingredient: ORPHENADRINE CITRATE
Strength: 100MG
Dosage Form/Route: TABLET, EXTENDED RELEASE;ORAL
Application: A085046 | Product #001
Applicant: SANDOZ INC
Approved: Approved Prior to Jan 1, 1982 | RLD: No | RS: No | Type: DISCN